FAERS Safety Report 19741712 (Version 2)
Quarter: 2021Q3

REPORT INFORMATION
  Report Type: Report from Study
  Country: KR (occurrence: KR)
  Receive Date: 20210825
  Receipt Date: 20210909
  Transmission Date: 20211014
  Serious: Yes (Hospitalization)
  Sender: FDA-Public Use
  Company Number: KR-ROCHE-2895574

PATIENT
  Age: 64 Year
  Sex: Male
  Weight: 43.3 kg

DRUGS (6)
  1. TAZOPERAN [Concomitant]
     Indication: PNEUMONIA
     Route: 042
     Dates: start: 20210728
  2. CEFTRIAXONE. [Concomitant]
     Active Substance: CEFTRIAXONE
     Indication: PNEUMONIA
     Route: 042
     Dates: start: 20210727, end: 20210728
  3. ATEZOLIZUMAB. [Suspect]
     Active Substance: ATEZOLIZUMAB
     Indication: OESOPHAGEAL CANCER METASTATIC
     Dosage: ON 09/AUG/2021, HE RECEIVED THE MOST RECENT DOSE OF ATEZOLIZUMAB (1200 MG) PRIOR TO SERIOUS ADVERSE
     Route: 041
     Dates: start: 20210615
  4. 5?FLUOROURACIL [Suspect]
     Active Substance: FLUOROURACIL
     Indication: OESOPHAGEAL CANCER METASTATIC
     Dosage: ON 09/AUG/2021, HE RECEIVED THE MOST RECENT DOSE OF 5 FLUROURACIL (1192 MG) PRIOR TO SERIOUS ADVERSE
     Route: 042
     Dates: start: 20210616
  5. CISPLATIN. [Suspect]
     Active Substance: CISPLATIN
     Indication: OESOPHAGEAL CANCER METASTATIC
     Dosage: ON 09/AUG/2021, HE RECEIVED THE MOST RECENT DOSE OF CISPLATIN (119.2) PRIOR TO SERIOUS ADVERSE EVENT
     Route: 042
     Dates: start: 20210615
  6. DENOGAN [Concomitant]
     Active Substance: PROPACETAMOL HYDROCHLORIDE
     Indication: PNEUMONIA
     Route: 042
     Dates: start: 20210726, end: 20210727

REACTIONS (1)
  - Acute kidney injury [Recovered/Resolved]

NARRATIVE: CASE EVENT DATE: 20210812
